FAERS Safety Report 13692604 (Version 2)
Quarter: 2017Q3

REPORT INFORMATION
  Report Type: Spontaneous
  Country: US (occurrence: US)
  Receive Date: 20170627
  Receipt Date: 20170809
  Transmission Date: 20171127
  Serious: No
  Sender: FDA-Public Use
  Company Number: US-PFIZER INC-2017275597

PATIENT
  Sex: Female

DRUGS (1)
  1. KERYDIN [Suspect]
     Active Substance: TAVABOROLE
     Indication: ONYCHOMYCOSIS
     Dosage: UNK, 1X/DAY (APPLIED ONCE A DAY AROUND, OVER, AND THROUGH THE AFFECTED NAIL)
     Dates: start: 20170606, end: 20170613

REACTIONS (2)
  - Oedema [Unknown]
  - Skin irritation [Unknown]
